FAERS Safety Report 5579978-9 (Version None)
Quarter: 2008Q1

REPORT INFORMATION
  Report Type: 
  Country: None (occurrence: None)
  Receive Date: 20080103
  Receipt Date: 20071227
  Transmission Date: 20080703
  Serious: Yes (Other)
  Sender: FDA-Public Use
  Company Number: US-BAYER-200717241NA

PATIENT
  Sex: Male

DRUGS (1)
  1. MAGNEVIST [Suspect]
     Indication: NUCLEAR MAGNETIC RESONANCE IMAGING BRAIN
     Dates: start: 20050617, end: 20050617

REACTIONS (8)
  - ALOPECIA [None]
  - JOINT SWELLING [None]
  - MOBILITY DECREASED [None]
  - PRURITUS [None]
  - SCAR [None]
  - SKIN DISORDER [None]
  - SKIN SWELLING [None]
  - SKIN TIGHTNESS [None]
